FAERS Safety Report 17003942 (Version 5)
Quarter: 2020Q4

REPORT INFORMATION
  Report Type: Spontaneous
  Country: US (occurrence: US)
  Receive Date: 20191107
  Receipt Date: 20201230
  Transmission Date: 20210113
  Serious: Yes (Other)
  Sender: FDA-Public Use
  Company Number: US-PFIZER INC-2019476064

PATIENT
  Age: 54 Year
  Sex: Female

DRUGS (2)
  1. NICOTROL [Suspect]
     Active Substance: NICOTINE
     Indication: SMOKING CESSATION THERAPY
     Dosage: UNK
  2. LYRICA [Suspect]
     Active Substance: PREGABALIN
     Dosage: 225 MG EVERY TWELVE HOURS
     Route: 048

REACTIONS (16)
  - Migraine [Unknown]
  - Crying [Unknown]
  - Weight decreased [Unknown]
  - Malnutrition [Unknown]
  - Suicidal ideation [Unknown]
  - Tobacco user [Unknown]
  - Cold sweat [Unknown]
  - Pain [Recovering/Resolving]
  - Joint stiffness [Unknown]
  - Withdrawal syndrome [Unknown]
  - Fatigue [Unknown]
  - Loss of personal independence in daily activities [Unknown]
  - Arthralgia [Unknown]
  - Stress [Unknown]
  - Insomnia [Unknown]
  - Muscular weakness [Unknown]

NARRATIVE: CASE EVENT DATE: 20201120
